FAERS Safety Report 8621623-X (Version None)
Quarter: 2012Q3

REPORT INFORMATION
  Report Type: 
  Country: None (occurrence: None)
  Receive Date: 20120820
  Receipt Date: 20120820
  Transmission Date: 20120928
  Serious: Yes (Other)
  Sender: FDA-Public Use
  Company Number: None

PATIENT
  Age: 59 Year
  Sex: Female
  Weight: 90.7194 kg

DRUGS (2)
  1. APRISO [Suspect]
     Indication: COLITIS
     Dosage: 4 CAPS Q MORNING PO
     Route: 048
     Dates: start: 20120717, end: 20120803
  2. APRISO [Suspect]
     Indication: DIVERTICULUM
     Dosage: 4 CAPS Q MORNING PO
     Route: 048
     Dates: start: 20120717, end: 20120803

REACTIONS (4)
  - DEHYDRATION [None]
  - CONDITION AGGRAVATED [None]
  - NAUSEA [None]
  - DIARRHOEA [None]
